FAERS Safety Report 8316465-9 (Version None)
Quarter: 2012Q2

REPORT INFORMATION
  Report Type: 
  Country: None (occurrence: None)
  Receive Date: 20120427
  Receipt Date: 20120412
  Transmission Date: 20120825
  Serious: No
  Sender: FDA-Public Use
  Company Number: PHHY2011JP76540

PATIENT
  Age: 80 Year
  Sex: Male

DRUGS (1)
  1. NEORAL [Suspect]
     Indication: APLASTIC ANAEMIA
     Dosage: 125 MG, DAILY IN TWO DIVIDED DOSES
     Route: 048

REACTIONS (1)
  - MEMORY IMPAIRMENT [None]
